FAERS Safety Report 5067880-0 (Version None)
Quarter: 2006Q3

REPORT INFORMATION
  Report Type: 
  Country: None (occurrence: None)
  Receive Date: 20060731
  Receipt Date: 20060714
  Transmission Date: 20061208
  Serious: Yes (Hospitalization)
  Sender: FDA-Public Use
  Company Number: 163-20785-06060236

PATIENT
  Age: 76 Year
  Sex: Female

DRUGS (20)
  1. THALOMID [Suspect]
     Indication: MULTIPLE MYELOMA
     Dosage: 50 MG, QHS, ORAL
     Route: 048
     Dates: start: 20060501
  2. LIPITOR [Concomitant]
  3. SINGULAIR [Concomitant]
  4. FISH OIL (FISH OIL) [Concomitant]
  5. PROTONIX [Concomitant]
  6. GEODON [Concomitant]
  7. LEXAPRO [Concomitant]
  8. TEGRETOL [Concomitant]
  9. GLUCOPHAGE [Concomitant]
  10. CLARINEX [Concomitant]
  11. FERROUS SULFATE TAB [Concomitant]
  12. BENICAR [Concomitant]
  13. DITROPAN [Concomitant]
  14. TRAMADOL HCL [Concomitant]
  15. GREEN TEA [Concomitant]
  16. TIVE CARE [Concomitant]
  17. NASONEX [Concomitant]
  18. BENADRYL [Concomitant]
  19. DURAGESIC (FENTANYL) (POULTICE OR PATCH) [Concomitant]
  20. CALCIUM (CALCIUM) [Concomitant]

REACTIONS (5)
  - ALANINE AMINOTRANSFERASE INCREASED [None]
  - ASPARTATE AMINOTRANSFERASE INCREASED [None]
  - BLOOD ALKALINE PHOSPHATASE INCREASED [None]
  - BLOOD CALCIUM DECREASED [None]
  - BLOOD CHLORIDE DECREASED [None]
